FAERS Safety Report 4359166-4 (Version None)
Quarter: 2004Q2

REPORT INFORMATION
  Report Type: 
  Country: None (occurrence: None)
  Receive Date: 20040517
  Receipt Date: 20040517
  Transmission Date: 20050107
  Serious: Yes (Hospitalization)
  Sender: FDA-Public Use
  Company Number: None

PATIENT
  Age: 59 Year
  Sex: Male

DRUGS (3)
  1. LITHIUM CARBONATE [Suspect]
     Indication: BIPOLAR DISORDER
     Dosage: 300 MG TID
     Dates: start: 19990401
  2. RABEPRAZOLE SODIUM [Concomitant]
  3. CHLORPROMAZINE [Concomitant]

REACTIONS (1)
  - DRUG TOXICITY [None]
